FAERS Safety Report 7132325-3 (Version None)
Quarter: 2010Q4

REPORT INFORMATION
  Report Type: 
  Country: None (occurrence: None)
  Receive Date: 20101129
  Receipt Date: 20101129
  Transmission Date: 20110411
  Serious: No
  Sender: FDA-Public Use
  Company Number: None

PATIENT
  Sex: Female
  Weight: 40.3701 kg

DRUGS (2)
  1. PREMARIN [Suspect]
     Indication: VAGINAL DISORDER
     Dosage: SMALL AMOUNT OF CREAM TO VULVAR AREA TWICE A DAY
     Route: 067
     Dates: start: 20101105
  2. .. [Concomitant]
     Indication: VAGINAL DISORDER
     Route: 067
     Dates: start: 20101105

REACTIONS (2)
  - FUNGAL INFECTION [None]
  - VULVOVAGINAL PAIN [None]
